FAERS Safety Report 5679545-2 (Version None)
Quarter: 2008Q1

REPORT INFORMATION
  Report Type: 
  Country: None (occurrence: None)
  Receive Date: 20080325
  Receipt Date: 20080313
  Transmission Date: 20080703
  Serious: Yes (Other)
  Sender: FDA-Public Use
  Company Number: AU-PFIZER INC-2008024239

PATIENT
  Age: 52 Year
  Sex: Female

DRUGS (11)
  1. LYRICA [Suspect]
     Indication: NEURALGIA
  2. PANADOL [Concomitant]
  3. ENDONE [Concomitant]
  4. OXYCONTIN [Concomitant]
  5. WARFARIN SODIUM [Concomitant]
  6. ASTRIX [Concomitant]
  7. PREDNISOLONE [Concomitant]
  8. CALCIUM [Concomitant]
  9. RAMACE [Concomitant]
  10. TAZAC [Concomitant]
  11. FISH OIL [Concomitant]

REACTIONS (6)
  - COORDINATION ABNORMAL [None]
  - DISTURBANCE IN ATTENTION [None]
  - DIZZINESS [None]
  - DYSSTASIA [None]
  - JOINT SWELLING [None]
  - NAUSEA [None]
